FAERS Safety Report 5310825-6 (Version None)
Quarter: 2007Q2

REPORT INFORMATION
  Report Type: 
  Country: None (occurrence: None)
  Receive Date: 20070428
  Receipt Date: 20070417
  Transmission Date: 20071010
  Serious: Yes (Other)
  Sender: FDA-Public Use
  Company Number: US-PFIZER INC-2006135698

PATIENT
  Sex: Male
  Weight: 88.5 kg

DRUGS (3)
  1. CHANTIX [Suspect]
     Indication: NICOTINE DEPENDENCE
     Route: 048
     Dates: start: 20060815, end: 20060917
  2. LIPITOR [Concomitant]
     Dosage: DAILY DOSE:10MG
     Route: 048
  3. LEVOXYL [Concomitant]
     Dosage: DAILY DOSE:187.5MCG
     Route: 048

REACTIONS (2)
  - COLITIS ULCERATIVE [None]
  - INFLAMMATORY BOWEL DISEASE [None]
